FAERS Safety Report 10971393 (Version 1)
Quarter: 2015Q1

REPORT INFORMATION
  Report Type: Spontaneous
  Country: CN (occurrence: CN)
  Receive Date: 20150331
  Receipt Date: 20150331
  Transmission Date: 20150721
  Serious: Yes (Life-Threatening)
  Sender: FDA-Public Use
  Company Number: CN-PFIZER INC-2015105801

PATIENT
  Age: 4 Month
  Sex: Female

DRUGS (2)
  1. METHYLPREDNISOLONE. [Suspect]
     Active Substance: METHYLPREDNISOLONE
     Indication: ANGIOSARCOMA
     Dosage: 4 MG/KG, DAILY
     Route: 042
  2. VINCRISTINE [Suspect]
     Active Substance: VINCRISTINE
     Indication: ANGIOSARCOMA
     Dosage: 0.05 MG/KG, WEEKLY
     Route: 042

REACTIONS (3)
  - Condition aggravated [Recovered/Resolved]
  - Haemangioma-thrombocytopenia syndrome [Recovered/Resolved]
  - Neoplasm [Recovered/Resolved]
